FAERS Safety Report 6289172-4 (Version None)
Quarter: 2009Q3

REPORT INFORMATION
  Report Type: 
  Country: None (occurrence: None)
  Receive Date: 20090728
  Receipt Date: 20090715
  Transmission Date: 20100115
  Serious: Yes (Hospitalization)
  Sender: FDA-Public Use
  Company Number: 2009-200223-NL

PATIENT
  Sex: Male

DRUGS (1)
  1. DEXAMETHASONE [Suspect]
     Indication: CROUP INFECTIOUS
     Dosage: DF, ORAL
     Route: 048

REACTIONS (5)
  - CONDITION AGGRAVATED [None]
  - CROUP INFECTIOUS [None]
  - DRUG INEFFECTIVE [None]
  - FATIGUE [None]
  - RESPIRATORY DISTRESS [None]
